FAERS Safety Report 14605348 (Version 1)
Quarter: 2018Q1

REPORT INFORMATION
  Report Type: Spontaneous
  Country: JP (occurrence: JP)
  Receive Date: 20180306
  Receipt Date: 20180306
  Transmission Date: 20180509
  Serious: Yes (Other)
  Sender: FDA-Public Use
  Company Number: JP-009507513-1803JPN001724

PATIENT
  Age: 56 Year
  Sex: Male

DRUGS (35)
  1. OPDIVO [Suspect]
     Active Substance: NIVOLUMAB
     Dosage: 162 MG, QD
     Route: 041
     Dates: start: 20170328, end: 20170328
  2. OPDIVO [Suspect]
     Active Substance: NIVOLUMAB
     Dosage: 169.5 MG, QD
     Route: 041
     Dates: start: 20170816, end: 20170816
  3. OPDIVO [Suspect]
     Active Substance: NIVOLUMAB
     Dosage: 171 MG, QD
     Route: 041
     Dates: start: 20170927, end: 20170927
  4. OPDIVO [Suspect]
     Active Substance: NIVOLUMAB
     Dosage: 155.7 MG, QD
     Route: 041
     Dates: start: 20170112, end: 20170112
  5. OPDIVO [Suspect]
     Active Substance: NIVOLUMAB
     Dosage: 165 MG, QD
     Route: 041
     Dates: start: 20170509, end: 20170509
  6. BASEN OD [Concomitant]
     Active Substance: VOGLIBOSE
  7. OPDIVO [Suspect]
     Active Substance: NIVOLUMAB
     Dosage: 154.8 MG, QD
     Route: 041
     Dates: start: 20161026, end: 20161026
  8. OPDIVO [Suspect]
     Active Substance: NIVOLUMAB
     Dosage: 155.7 MG, QD
     Route: 041
     Dates: start: 20161213, end: 20161213
  9. OPDIVO [Suspect]
     Active Substance: NIVOLUMAB
     Dosage: 155.7 MG, QD
     Route: 041
     Dates: start: 20170210, end: 20170210
  10. OPDIVO [Suspect]
     Active Substance: NIVOLUMAB
     Dosage: 165 MG, QD
     Route: 041
     Dates: start: 20170411, end: 20170411
  11. OPDIVO [Suspect]
     Active Substance: NIVOLUMAB
     Dosage: 165 MG, QD
     Route: 041
     Dates: start: 20170425, end: 20170425
  12. OPDIVO [Suspect]
     Active Substance: NIVOLUMAB
     Dosage: 171 MG, QD
     Route: 041
     Dates: start: 20170913, end: 20170913
  13. TAKEPRON [Concomitant]
     Active Substance: LANSOPRAZOLE
  14. OPDIVO [Suspect]
     Active Substance: NIVOLUMAB
     Dosage: 158.7 MG, QD
     Route: 041
     Dates: start: 20161109, end: 20161109
  15. OPDIVO [Suspect]
     Active Substance: NIVOLUMAB
     Dosage: 155.7 MG, QD
     Route: 041
     Dates: start: 20161228, end: 20161228
  16. OPDIVO [Suspect]
     Active Substance: NIVOLUMAB
     Dosage: 162 MG, QD
     Route: 041
     Dates: start: 20170314, end: 20170314
  17. OPDIVO [Suspect]
     Active Substance: NIVOLUMAB
     Dosage: 169.5 MG, QD
     Route: 041
     Dates: start: 20170802, end: 20170802
  18. GLACTIV [Suspect]
     Active Substance: SITAGLIPTIN
     Indication: TYPE 2 DIABETES MELLITUS
     Dosage: UNK
     Route: 048
  19. OPDIVO [Suspect]
     Active Substance: NIVOLUMAB
     Indication: NON-SMALL CELL LUNG CANCER
     Dosage: 162.9 MG, QD
     Route: 041
     Dates: start: 20160712, end: 20160712
  20. OPDIVO [Suspect]
     Active Substance: NIVOLUMAB
     Dosage: 158.7 MG, QD
     Route: 041
     Dates: start: 20160726, end: 20160726
  21. OPDIVO [Suspect]
     Active Substance: NIVOLUMAB
     Dosage: 155.7 MG, QD
     Route: 041
     Dates: start: 20170127, end: 20170127
  22. OPDIVO [Suspect]
     Active Substance: NIVOLUMAB
     Dosage: 170.1 MG, QD
     Route: 041
     Dates: start: 20170523, end: 20170523
  23. OPDIVO [Suspect]
     Active Substance: NIVOLUMAB
     Dosage: 169.5 MG, QD
     Route: 041
     Dates: start: 20170830, end: 20170830
  24. MIYA-BM [Concomitant]
     Active Substance: CLOSTRIDIUM BUTYRICUM SPORES STRAIN M-55
  25. OPDIVO [Suspect]
     Active Substance: NIVOLUMAB
     Dosage: 155.7 MG, QD
     Route: 041
     Dates: start: 20161124, end: 20161124
  26. OPDIVO [Suspect]
     Active Substance: NIVOLUMAB
     Dosage: 170.1 MG, QD
     Route: 041
     Dates: start: 20170620, end: 20170620
  27. E KEPPRA [Concomitant]
     Active Substance: LEVETIRACETAM
  28. OPDIVO [Suspect]
     Active Substance: NIVOLUMAB
     Dosage: 153.6 MG, QD
     Route: 041
     Dates: start: 20160921, end: 20160921
  29. OPDIVO [Suspect]
     Active Substance: NIVOLUMAB
     Dosage: 170.1 MG, QD
     Route: 041
     Dates: start: 20170606, end: 20170606
  30. OPDIVO [Suspect]
     Active Substance: NIVOLUMAB
     Dosage: 170.1 MG, QD
     Route: 041
     Dates: start: 20170704, end: 20170704
  31. OPDIVO [Suspect]
     Active Substance: NIVOLUMAB
     Dosage: 170.1 MG, QD
     Route: 041
     Dates: start: 20170719, end: 20170719
  32. OPDIVO [Suspect]
     Active Substance: NIVOLUMAB
     Dosage: 154.8 MG, QD
     Route: 041
     Dates: start: 20160809, end: 20160809
  33. OPDIVO [Suspect]
     Active Substance: NIVOLUMAB
     Dosage: 150.9 MG, QD
     Route: 041
     Dates: start: 20160826, end: 20160826
  34. OPDIVO [Suspect]
     Active Substance: NIVOLUMAB
     Dosage: 150 MG, QD
     Route: 041
     Dates: start: 20161005, end: 20161005
  35. OPDIVO [Suspect]
     Active Substance: NIVOLUMAB
     Dosage: 162 MG, QD
     Route: 041
     Dates: start: 20170228, end: 20170228

REACTIONS (2)
  - Hypothyroidism [Not Recovered/Not Resolved]
  - Interstitial lung disease [Not Recovered/Not Resolved]

NARRATIVE: CASE EVENT DATE: 20161018
